FAERS Safety Report 8586313-0 (Version None)
Quarter: 2012Q3

REPORT INFORMATION
  Report Type: 
  Country: None (occurrence: None)
  Receive Date: 20120810
  Receipt Date: 20120801
  Transmission Date: 20120928
  Serious: Yes (Disabling, Other)
  Sender: FDA-Public Use
  Company Number: US-009507513-1203USA03379

PATIENT

DRUGS (2)
  1. FOSAMAX [Suspect]
     Indication: BONE LOSS
  2. FOSAMAX [Suspect]
     Indication: OSTEOPOROSIS
     Dosage: 70 MG, UNK
     Route: 048
     Dates: start: 20030101, end: 20080101

REACTIONS (16)
  - AORTIC VALVE CALCIFICATION [None]
  - IMPAIRED HEALING [None]
  - GINGIVAL PAIN [None]
  - BONE DISORDER [None]
  - HYPERTENSION [None]
  - GRAFT DYSFUNCTION [None]
  - OSTEONECROSIS OF JAW [None]
  - PERIODONTITIS [None]
  - TOOTHACHE [None]
  - THYROID DISORDER [None]
  - ADVERSE EVENT [None]
  - DENTAL IMPLANTATION [None]
  - DEPRESSION [None]
  - DENTAL CARIES [None]
  - ENDODONTIC PROCEDURE [None]
  - INFECTION [None]
